FAERS Safety Report 20606550 (Version 4)
Quarter: 2023Q2

REPORT INFORMATION
  Report Type: Spontaneous
  Country: US (occurrence: US)
  Receive Date: 20220317
  Receipt Date: 20230417
  Transmission Date: 20230722
  Serious: Yes (Other)
  Sender: FDA-Public Use
  Company Number: US-PFIZER INC-202101106231

PATIENT
  Age: 82 Year
  Sex: Female
  Weight: 72.562 kg

DRUGS (3)
  1. IBRANCE [Suspect]
     Active Substance: PALBOCICLIB
     Dosage: 125 MG
     Dates: end: 20210823
  2. IBRANCE [Suspect]
     Active Substance: PALBOCICLIB
     Dosage: 100 MG
  3. IBRANCE [Suspect]
     Active Substance: PALBOCICLIB
     Dosage: 100 MG, CYCLIC (1 TABLET BY MOUTH FOR 21 DAYS AND OFF FOR 7 DAYS)
     Route: 048
     Dates: start: 202104

REACTIONS (7)
  - Neuropathy peripheral [Unknown]
  - Stress fracture [Recovering/Resolving]
  - Memory impairment [Not Recovered/Not Resolved]
  - Hypersomnia [Recovering/Resolving]
  - Alopecia [Unknown]
  - Weight decreased [Unknown]
  - General physical health deterioration [Unknown]

NARRATIVE: CASE EVENT DATE: 20220302
